FAERS Safety Report 16785487 (Version 1)
Quarter: 2019Q3

REPORT INFORMATION
  Report Type: Spontaneous
  Country: US (occurrence: US)
  Receive Date: 20190717
  Receipt Date: 20190717
  Transmission Date: 20191005
  Serious: Yes (Disabling)
  Sender: FDA-Public Use
  Company Number: None

PATIENT
  Age: 83 Year
  Sex: Male
  Weight: 74.39 kg

DRUGS (7)
  1. DONEPEZIL HCL [Suspect]
     Active Substance: DONEPEZIL HYDROCHLORIDE
     Dosage: 5 MG BY MOUTH EVERY EVENING
     Route: 048
  2. PREDNISONE 5MG [Suspect]
     Active Substance: PREDNISONE
     Dosage: ?          QUANTITY:5 MG MILLIGRAM(S);?
  3. HYDROXYZINE HCL [Suspect]
     Active Substance: HYDROXYZINE HYDROCHLORIDE
     Dosage: ?          QUANTITY:10 MG MILLIGRAM(S);?
  4. CHOLECALCIFEROL [Suspect]
     Active Substance: CHOLECALCIFEROL
     Dosage: ?          QUANTITY:2000 IU INTERNATIONAL UNIT(S);?
     Route: 048
  5. LISINOPRIL HCTZ [Suspect]
     Active Substance: HYDROCHLOROTHIAZIDE\LISINOPRIL
     Dosage: ?          QUANTITY:20 MG MILLIGRAM(S);?
  6. OMEPRAZOLE 20MG [Suspect]
     Active Substance: OMEPRAZOLE
     Dosage: ?          QUANTITY:20 MG MILLIGRAM(S);?
     Route: 048
  7. AMLODIPINE BESYLATE 10MG [Suspect]
     Active Substance: AMLODIPINE BESYLATE
     Indication: BLOOD PRESSURE MEASUREMENT
     Dosage: ?          QUANTITY:10 MG MILLIGRAM(S);?

REACTIONS (11)
  - Visual impairment [None]
  - Skin atrophy [None]
  - Diarrhoea [None]
  - Hallucination [None]
  - Urinary incontinence [None]
  - Insomnia [None]
  - Neck pain [None]
  - Chest pain [None]
  - Abdominal pain [None]
  - Pollakiuria [None]
  - Dizziness [None]

NARRATIVE: CASE EVENT DATE: 2019
